FAERS Safety Report 6736316-3 (Version None)
Quarter: 2010Q2

REPORT INFORMATION
  Report Type: 
  Country: None (occurrence: None)
  Receive Date: 20100520
  Receipt Date: 20100520
  Transmission Date: 20101027
  Serious: Yes (Other)
  Sender: FDA-Public Use
  Company Number: None

PATIENT
  Age: 55 Year
  Sex: Female
  Weight: 62.7 kg

DRUGS (1)
  1. QUESTRAN [Suspect]
     Indication: BLOOD CHOLESTEROL INCREASED
     Dosage: 1 SCOOP 2 X /DAY MIXED IN WATER
     Dates: start: 20100110

REACTIONS (4)
  - CONSTIPATION [None]
  - DRUG INEFFECTIVE [None]
  - RASH PRURITIC [None]
  - SKIN SWELLING [None]
